FAERS Safety Report 22300994 (Version 1)
Quarter: 2023Q2

REPORT INFORMATION
  Report Type: Spontaneous
  Country: US (occurrence: US)
  Receive Date: 20230509
  Receipt Date: 20230509
  Transmission Date: 20230722
  Serious: No
  Sender: FDA-Public Use
  Company Number: US-SANOFI-01599921

PATIENT
  Age: 59 Year
  Sex: Male

DRUGS (1)
  1. SOLIQUA 100/33 [Suspect]
     Active Substance: INSULIN GLARGINE\LIXISENATIDE
     Dosage: 35 UNITS BID
     Route: 065
     Dates: start: 2015

REACTIONS (2)
  - Inappropriate schedule of product administration [Unknown]
  - Intentional product use issue [Unknown]
